FAERS Safety Report 23768147 (Version 1)
Quarter: 2024Q2

REPORT INFORMATION
  Report Type: Spontaneous
  Country: US (occurrence: US)
  Receive Date: 20240422
  Receipt Date: 20240422
  Transmission Date: 20240715
  Serious: Yes (Other)
  Sender: FDA-Public Use
  Company Number: US-The Proactiv LLC-2155851

PATIENT
  Age: 13 Year
  Sex: Female

DRUGS (8)
  1. PROACTIV SOLUTION RENEWING CLEANSER [Suspect]
     Active Substance: BENZOYL PEROXIDE
     Route: 061
     Dates: start: 20240301, end: 20240411
  2. PROACTIV REVITALIZING TONER COMBINATION THERAPY ACNE TREATMENT [Suspect]
     Active Substance: SALICYLIC ACID
     Route: 061
     Dates: start: 20240301, end: 20240411
  3. COSMETICS [Suspect]
     Active Substance: COSMETICS
     Route: 061
     Dates: start: 20240301, end: 20240411
  4. COSMETICS [Suspect]
     Active Substance: COSMETICS
     Route: 061
     Dates: start: 20240301, end: 20240411
  5. PROACTIV EMERGENCY BLEMISH RELIEF [Suspect]
     Active Substance: BENZOYL PEROXIDE
     Route: 061
     Dates: start: 20240301, end: 20240411
  6. PROACTIV ACNE BODY WASH [Suspect]
     Active Substance: SALICYLIC ACID
     Route: 061
     Dates: start: 20240301, end: 20240411
  7. PROACTIV SOLUTION BLACKHEAD DISSOLVING [Suspect]
     Active Substance: SALICYLIC ACID
     Route: 061
     Dates: start: 20240301, end: 20240411
  8. PROACTIV REPAIRING TREATMENT [Suspect]
     Active Substance: BENZOYL PEROXIDE
     Route: 061
     Dates: start: 20240301, end: 20240411

REACTIONS (7)
  - Rash [Unknown]
  - Throat tightness [Unknown]
  - Eye swelling [Unknown]
  - Swelling face [Unknown]
  - Ocular hyperaemia [Unknown]
  - Erythema [Unknown]
  - Dyspnoea [Unknown]
